FAERS Safety Report 4472560-6 (Version None)
Quarter: 2004Q4

REPORT INFORMATION
  Report Type: 
  Country: None (occurrence: None)
  Receive Date: 20041008
  Receipt Date: 20041001
  Transmission Date: 20050328
  Serious: Yes (Other)
  Sender: FDA-Public Use
  Company Number: 170829

PATIENT
  Age: 46 Year
  Sex: Female

DRUGS (1)
  1. AVONEX [Suspect]
     Indication: MULTIPLE SCLEROSIS
     Dosage: 30 MCG QW IM
     Route: 030
     Dates: start: 20010901

REACTIONS (5)
  - ASTHMA [None]
  - BRONCHITIS [None]
  - CAROTID ARTERY OCCLUSION [None]
  - CARPAL TUNNEL SYNDROME [None]
  - HEADACHE [None]
